FAERS Safety Report 5914139-2 (Version None)
Quarter: 2008Q3

REPORT INFORMATION
  Report Type: 
  Country: None (occurrence: None)
  Receive Date: 20080909
  Receipt Date: 20080205
  Transmission Date: 20090109
  Serious: Yes (Death)
  Sender: FDA-Public Use
  Company Number: 163-20785-08010644

PATIENT
  Age: 73 Year
  Sex: Male

DRUGS (2)
  1. THALOMID [Suspect]
     Indication: BRAIN NEOPLASM MALIGNANT
     Dosage: 100 MG, 1 IN 1D, ORAL
     Route: 048
     Dates: start: 20071018, end: 20071201
  2. THALOMID [Suspect]
     Indication: MALIGNANT NEOPLASM OF SPINAL CORD
     Dosage: 100 MG, 1 IN 1D, ORAL
     Route: 048
     Dates: start: 20071018, end: 20071201

REACTIONS (1)
  - NEOPLASM PROGRESSION [None]
